FAERS Safety Report 11293459 (Version 1)
Quarter: 2015Q3

REPORT INFORMATION
  Report Type: Report from Study
  Country: GB (occurrence: GB)
  Receive Date: 20150722
  Receipt Date: 20150722
  Transmission Date: 20151125
  Serious: Yes (Hospitalization)
  Sender: FDA-Public Use
  Company Number: GB-ASTRAZENECA-2015SE67456

PATIENT
  Age: 24660 Day
  Sex: Male

DRUGS (10)
  1. BRILINTA [Suspect]
     Active Substance: TICAGRELOR
     Indication: ACUTE CORONARY SYNDROME
     Route: 048
     Dates: start: 20140422, end: 20150622
  2. MESALAZINE [Concomitant]
     Active Substance: MESALAMINE
  3. ATORVASTATIN [Concomitant]
     Active Substance: ATORVASTATIN
  4. ACETYLSALICYLIC ACID [Suspect]
     Active Substance: ASPIRIN
     Indication: THROMBOSIS PROPHYLAXIS
     Route: 048
     Dates: end: 20140522
  5. OMEPRAZOLE. [Concomitant]
     Active Substance: OMEPRAZOLE
  6. BRILINTA [Suspect]
     Active Substance: TICAGRELOR
     Indication: THROMBOSIS PROPHYLAXIS
     Route: 048
     Dates: start: 20140422, end: 20150622
  7. AMLODIPINE [Concomitant]
     Active Substance: AMLODIPINE BESYLATE
  8. BISOPROLOL [Concomitant]
     Active Substance: BISOPROLOL
  9. CANDESARTAN [Concomitant]
     Active Substance: CANDESARTAN
  10. ACETYLSALICYLIC ACID [Suspect]
     Active Substance: ASPIRIN
     Indication: ACUTE CORONARY SYNDROME
     Route: 048
     Dates: end: 20140522

REACTIONS (1)
  - Atrioventricular block second degree [Recovered/Resolved with Sequelae]

NARRATIVE: CASE EVENT DATE: 20140807
